FAERS Safety Report 18406889 (Version 1)
Quarter: 2020Q4

REPORT INFORMATION
  Report Type: Spontaneous
  Country: US (occurrence: US)
  Receive Date: 20201020
  Receipt Date: 20201020
  Transmission Date: 20210114
  Serious: Yes (Disabling, Other)
  Sender: FDA-Public Use
  Company Number: US-UCBSA-2020040923

PATIENT
  Sex: Female

DRUGS (1)
  1. VIMPAT [Suspect]
     Active Substance: LACOSAMIDE
     Indication: SEIZURE
     Dosage: 100MG AM AND 200MG PM, 2X/DAY (BID)

REACTIONS (5)
  - Nervous system disorder [Unknown]
  - Injury [Unknown]
  - Struck by lightning [Unknown]
  - Head injury [Unknown]
  - Product use issue [Unknown]
